FAERS Safety Report 8262012-X (Version None)
Quarter: 2012Q2

REPORT INFORMATION
  Report Type: 
  Country: None (occurrence: None)
  Receive Date: 20120405
  Receipt Date: 20120328
  Transmission Date: 20120825
  Serious: Yes (Other)
  Sender: FDA-Public Use
  Company Number: US-BAYER-200829300NA

PATIENT
  Age: 45 Year
  Sex: Male
  Weight: 88.345 kg

DRUGS (31)
  1. MAGNEVIST [Suspect]
     Indication: ANGIOGRAM
     Dates: start: 20070205, end: 20070205
  2. OMNISCAN [Suspect]
     Indication: PRODUCT USED FOR UNKNOWN INDICATION
  3. IRON SUPPLEMENT [Concomitant]
  4. PLAVIX [Concomitant]
  5. LIPITOR [Concomitant]
  6. NIFEDIPINE [Concomitant]
  7. HYDRALAZINE HCL [Concomitant]
  8. ALPRAZOLAM [Concomitant]
  9. PROHANCE [Suspect]
     Indication: PRODUCT USED FOR UNKNOWN INDICATION
  10. PROCARDIA [Concomitant]
  11. COUMADIN [Concomitant]
  12. MULTIHANCE [Suspect]
     Indication: PRODUCT USED FOR UNKNOWN INDICATION
  13. EPOGEN [Concomitant]
     Dates: start: 19900101, end: 19990615
  14. IMMUNOSUPPRESSIVE AGENTS [Concomitant]
  15. OPTIMARK [Suspect]
     Indication: PRODUCT USED FOR UNKNOWN INDICATION
  16. RESTORIL [Concomitant]
  17. MULTI-VITAMIN [Concomitant]
  18. DIGOXIN [Concomitant]
  19. PREDNISONE 50MG TAB [Concomitant]
  20. COREG [Concomitant]
  21. GADOLINIUM IN UNSPECIFIED DRUG [Suspect]
     Indication: NUCLEAR MAGNETIC RESONANCE IMAGING ABDOMINAL
     Dosage: UNK UNK, ONCE
     Dates: start: 20021120, end: 20021120
  22. NEORAL [Concomitant]
  23. HEART MEDICATION (NOS) [Concomitant]
  24. AMIODARONE HCL [Concomitant]
     Indication: ATRIAL FIBRILLATION
     Dosage: UNK
  25. EFFEXOR [Concomitant]
  26. MAGNEVIST [Suspect]
     Indication: NUCLEAR MAGNETIC RESONANCE IMAGING
  27. COUMADIN [Concomitant]
  28. PREDNISONE 50MG TAB [Concomitant]
  29. HYDROCODONE [Concomitant]
  30. LIPITOR [Concomitant]
  31. LASIX [Concomitant]

REACTIONS (40)
  - PAIN [None]
  - OEDEMA PERIPHERAL [None]
  - DISCOMFORT [None]
  - MYOCARDIAL INFARCTION [None]
  - CELLULITIS [None]
  - GENERAL PHYSICAL HEALTH DETERIORATION [None]
  - RASH [None]
  - MAJOR DEPRESSION [None]
  - PNEUMONIA [None]
  - CLOSTRIDIUM DIFFICILE COLITIS [None]
  - LUMBAR RADICULOPATHY [None]
  - SEPSIS [None]
  - INJURY [None]
  - MOBILITY DECREASED [None]
  - CARDIAC ARREST [None]
  - PERICARDIAL EXCISION [None]
  - FALL [None]
  - TREATMENT NONCOMPLIANCE [None]
  - BLOOD PRESSURE INADEQUATELY CONTROLLED [None]
  - CONTUSION [None]
  - TRANSPLANT FAILURE [None]
  - PAIN IN EXTREMITY [None]
  - BALANCE DISORDER [None]
  - VENTRICULAR EXTRASYSTOLES [None]
  - CHOLECYSTECTOMY [None]
  - HYPERKALAEMIA [None]
  - EMOTIONAL DISTRESS [None]
  - BACK PAIN [None]
  - MUSCULAR WEAKNESS [None]
  - MUSCLE SPASMS [None]
  - GOUTY ARTHRITIS [None]
  - PALLOR [None]
  - ANXIETY [None]
  - GAIT DISTURBANCE [None]
  - HAEMODIALYSIS [None]
  - NEPHROGENIC SYSTEMIC FIBROSIS [None]
  - MYALGIA [None]
  - MUSCLE ATROPHY [None]
  - UNRESPONSIVE TO STIMULI [None]
  - RENAL CANCER [None]
